FAERS Safety Report 9294220 (Version 2)
Quarter: 2014Q1

REPORT INFORMATION
  Report Type: Spontaneous
  Country: US (occurrence: US)
  Receive Date: 20130516
  Receipt Date: 20140303
  Transmission Date: 20141002
  Serious: No
  Sender: FDA-Public Use
  Company Number: US-009507513-1305USA008625

PATIENT
  Sex: Male

DRUGS (1)
  1. PROPECIA [Suspect]
     Indication: ALOPECIA
     Dosage: UNK
     Route: 048
     Dates: start: 2004, end: 2008

REACTIONS (20)
  - Sexual dysfunction [Not Recovered/Not Resolved]
  - Erectile dysfunction [Not Recovered/Not Resolved]
  - Nervous system disorder [Unknown]
  - Hypertension [Unknown]
  - Diabetes mellitus [Unknown]
  - Hypercholesterolaemia [Unknown]
  - Depression [Unknown]
  - Hyperthyroidism [Unknown]
  - Asthma [Unknown]
  - Anxiety [Unknown]
  - Skin disorder [Unknown]
  - Gastrooesophageal reflux disease [Unknown]
  - Malaria [Unknown]
  - Hypersensitivity [Unknown]
  - Restless legs syndrome [Unknown]
  - Cardiac disorder [Unknown]
  - Fibromyalgia [Unknown]
  - Gout [Unknown]
  - Acrochordon [Unknown]
  - Obesity [Unknown]
